FAERS Safety Report 25227913 (Version 1)
Quarter: 2025Q2

REPORT INFORMATION
  Report Type: Spontaneous
  Country: CN (occurrence: CN)
  Receive Date: 20250423
  Receipt Date: 20250423
  Transmission Date: 20250716
  Serious: Yes (Hospitalization)
  Sender: Kenvue
  Company Number: CN-KENVUE-20250405551

PATIENT

DRUGS (1)
  1. CHILDRENS MOTRIN [Suspect]
     Active Substance: IBUPROFEN
     Indication: Antipyresis
     Route: 048
     Dates: start: 20250305

REACTIONS (3)
  - Product administered to patient of inappropriate age [Unknown]
  - Dermatitis allergic [Recovering/Resolving]
  - Asthma [Recovering/Resolving]

NARRATIVE: CASE EVENT DATE: 20250305
